FAERS Safety Report 25895366 (Version 1)
Quarter: 2025Q4

REPORT INFORMATION
  Report Type: Spontaneous
  Country: US (occurrence: US)
  Receive Date: 20251008
  Receipt Date: 20251008
  Transmission Date: 20260118
  Serious: No
  Sender: SUNOVION
  Company Number: US-SMPA-2025SPA012394

PATIENT
  Age: 71 Year
  Sex: Male

DRUGS (12)
  1. ORGOVYX [Suspect]
     Active Substance: RELUGOLIX
     Indication: Prostate cancer
     Dosage: 360 MG
     Route: 048
     Dates: start: 20250712, end: 20250712
  2. ORGOVYX [Suspect]
     Active Substance: RELUGOLIX
     Dosage: 120 MG
     Route: 048
  3. HERBALS\WITHANIA SOMNIFERA ROOT [Concomitant]
     Active Substance: HERBALS\WITHANIA SOMNIFERA ROOT
  4. COLLAGEN [Concomitant]
     Active Substance: COLLAGEN
  5. FLOMAX [Concomitant]
     Active Substance: TAMSULOSIN HYDROCHLORIDE
  6. IBUPROFEN [Concomitant]
     Active Substance: IBUPROFEN
  7. Livton Complex [Concomitant]
  8. METANX [Concomitant]
     Active Substance: LEVOMEFOLATE CALCIUM\METHYLCOBALAMIN\PYRIDOXAL PHOSPHATE ANHYDROUS
  9. TRAMADOL [Concomitant]
     Active Substance: TRAMADOL
  10. VITAMIN A [Concomitant]
     Active Substance: VITAMIN A
  11. VITAMIN B [Concomitant]
     Active Substance: VITAMIN B
  12. VITAMIN C [Concomitant]
     Active Substance: ASCORBIC ACID

REACTIONS (5)
  - Palpitations [Unknown]
  - Dyspnoea [Unknown]
  - Photosensitivity reaction [Unknown]
  - Dizziness [Unknown]
  - Fatigue [Unknown]
